FAERS Safety Report 20613787 (Version 1)
Quarter: 2022Q1

REPORT INFORMATION
  Report Type: Spontaneous
  Country: ID (occurrence: ID)
  Receive Date: 20220319
  Receipt Date: 20220319
  Transmission Date: 20220423
  Serious: No
  Sender: FDA-Public Use
  Company Number: ID-LUPIN PHARMACEUTICALS INC.-2022-03707

PATIENT
  Age: 24 Year
  Sex: Male

DRUGS (10)
  1. METHYLPREDNISOLONE [Suspect]
     Active Substance: METHYLPREDNISOLONE
     Indication: COVID-19
     Dosage: 62.5 MG, TID (THREE TIMES A DAY; PLANNED FOR 21 DAYS, TAPERING DOWN)
     Route: 042
  2. METHYLPREDNISOLONE [Suspect]
     Active Substance: METHYLPREDNISOLONE
     Dosage: UNK, DOSE WAS TAPERED
     Route: 042
  3. VITAMIN D [Suspect]
     Active Substance: VITAMIN D NOS
     Indication: COVID-19
     Dosage: 5000 INTERNATIONAL UNIT, QD
     Route: 048
  4. VITAMIN C [Suspect]
     Active Substance: ASCORBIC ACID
     Indication: COVID-19
     Dosage: 1000 MG, QD
     Route: 042
  5. ZINC [Suspect]
     Active Substance: ZINC
     Indication: COVID-19
     Dosage: 50 MG, QD
     Route: 048
  6. REMDESIVIR [Suspect]
     Active Substance: REMDESIVIR
     Indication: COVID-19
     Dosage: 200 MG, QD
     Route: 042
  7. REMDESIVIR [Suspect]
     Active Substance: REMDESIVIR
     Dosage: 100 MG, QD (RECEIVED ON THE FOLLOWING DAYS)
     Route: 042
  8. HEPARIN [Concomitant]
     Active Substance: HEPARIN SODIUM
     Indication: Prophylaxis
     Dosage: 10000 INTERNATIONAL UNIT, QD (FORMULATION: SYRINGE PUMP)
     Route: 065
  9. COTRIMOXAZOLE [Concomitant]
     Active Substance: SULFAMETHOXAZOLE\TRIMETHOPRIM
     Indication: Pneumocystis jirovecii pneumonia
     Dosage: 2 DOSAGE FORM, TID (RECEIVED 2 TABLETS, THREE TIMES A DAY)
     Route: 048
  10. CEFOPERAZONE SODIUM\SULBACTAM SODIUM [Concomitant]
     Active Substance: CEFOPERAZONE SODIUM\SULBACTAM SODIUM
     Indication: Bacterial infection
     Dosage: UNK
     Route: 065

REACTIONS (1)
  - Off label use [Unknown]
